FAERS Safety Report 6174416-X (Version None)
Quarter: 2009Q2

REPORT INFORMATION
  Report Type: 
  Country: None (occurrence: None)
  Receive Date: 20090430
  Receipt Date: 20080529
  Transmission Date: 20091009
  Serious: No
  Sender: FDA-Public Use
  Company Number: US-ASTRAZENECA-2008UW10892

PATIENT
  Age: 26493 Day
  Sex: Male
  Weight: 96.2 kg

DRUGS (5)
  1. NEXIUM [Suspect]
     Route: 048
     Dates: start: 20080522
  2. PLAVIX [Concomitant]
  3. TOPROL-XL [Concomitant]
  4. FLOMAX [Concomitant]
  5. DIOVAN [Concomitant]

REACTIONS (1)
  - MUSCLE SPASMS [None]
